FAERS Safety Report 24736493 (Version 1)
Quarter: 2024Q4

REPORT INFORMATION
  Report Type: Report from Study
  Country: NL (occurrence: NL)
  Receive Date: 20241216
  Receipt Date: 20241216
  Transmission Date: 20250115
  Serious: Yes (Other)
  Sender: ABBVIE
  Company Number: NL-ABBVIE-6045804

PATIENT
  Age: 63 Year
  Sex: Male

DRUGS (4)
  1. CARBIDOPA\LEVODOPA [Suspect]
     Active Substance: CARBIDOPA\LEVODOPA
     Indication: Parkinson^s disease
     Route: 050
     Dates: start: 20221010
  2. CARBIDOPA\LEVODOPA [Suspect]
     Active Substance: CARBIDOPA\LEVODOPA
     Dosage: DAY PUMP, MORNING DOSAGE: 13.5MG, EXTRA DOSE: 4.8ML, NIGHT CONTINUOUS DOSAGE: 3 ML/H, THERAPY DUR...
     Route: 050
     Dates: start: 20241205
  3. CARBIDOPA\LEVODOPA [Suspect]
     Active Substance: CARBIDOPA\LEVODOPA
     Dosage: DAY PUMP, MORNING DOSAGE: 13.5MG, EXTRA DOSE: 4.8ML, NIGHT CONTINUOUS DOSAGE: 3 ML/H, THERAPY DUR...
     Route: 050
     Dates: start: 20240509, end: 20240704
  4. ROPINIROLE [Concomitant]
     Active Substance: ROPINIROLE
     Indication: Sleep disorder

REACTIONS (5)
  - Cataract [Recovered/Resolved]
  - Muscle rigidity [Not Recovered/Not Resolved]
  - Somnolence [Not Recovered/Not Resolved]
  - Bradykinesia [Not Recovered/Not Resolved]
  - Device breakage [Unknown]
